FAERS Safety Report 7292645-9 (Version None)
Quarter: 2011Q1

REPORT INFORMATION
  Report Type: 
  Country: None (occurrence: None)
  Receive Date: 20110215
  Receipt Date: 20110209
  Transmission Date: 20110831
  Serious: Yes (Hospitalization)
  Sender: FDA-Public Use
  Company Number: BR-SANOFI-AVENTIS-2011SA008811

PATIENT
  Sex: Male
  Weight: 2.7 kg

DRUGS (4)
  1. MILK POWDER [Suspect]
  2. CLEXANE SYRINGES [Suspect]
     Dosage: INJECTION IN THE MORNING
     Dates: start: 20110116
  3. CLEXANE SYRINGES [Suspect]
     Indication: THROMBOSIS PROPHYLAXIS
     Dosage: INJECTION IN THE MORNING
     Route: 064
     Dates: start: 20101223, end: 20110115
  4. CLEXANE SYRINGES [Suspect]
     Dosage: INJECTION IN THE AFTERNOON
     Route: 064
     Dates: start: 20101223, end: 20110115

REACTIONS (4)
  - HAEMATOCHEZIA [None]
  - DRUG EXPOSURE VIA BREAST MILK [None]
  - LACTOSE INTOLERANCE [None]
  - DRUG EXPOSURE DURING PREGNANCY [None]
